FAERS Safety Report 25765744 (Version 1)
Quarter: 2025Q3

REPORT INFORMATION
  Report Type: Spontaneous
  Country: US (occurrence: US)
  Receive Date: 20250905
  Receipt Date: 20250905
  Transmission Date: 20251021
  Serious: No
  Sender: DOMPE FARMACEUTICI
  Company Number: US-FARMAPROD-202406-2232

PATIENT
  Age: 61 Year
  Sex: Female

DRUGS (23)
  1. OXERVATE [Suspect]
     Active Substance: CENEGERMIN-BKBJ
     Indication: Neurotrophic keratopathy
     Route: 047
     Dates: start: 20240610
  2. AUTOLOGOUS HUMAN CORNEAL EPITHELIAL CELLS [Concomitant]
     Active Substance: AUTOLOGOUS HUMAN CORNEAL EPITHELIAL CELLS
  3. KLARITY C [Concomitant]
  4. TYLENOL [Concomitant]
     Active Substance: ACETAMINOPHEN
  5. TIZANIDINE HYDROCHLORIDE [Concomitant]
     Active Substance: TIZANIDINE HYDROCHLORIDE
  6. DEXILANT [Concomitant]
     Active Substance: DEXLANSOPRAZOLE
  7. VITAMIN B12 [Concomitant]
     Active Substance: CYANOCOBALAMIN
  8. VITAMIN D3 [Concomitant]
     Active Substance: CHOLECALCIFEROL
  9. MAGNESIUM [Concomitant]
     Active Substance: MAGNESIUM
  10. VENLAFAXINE HCL [Concomitant]
     Active Substance: VENLAFAXINE HYDROCHLORIDE
  11. ESTRADIOL [Concomitant]
     Active Substance: ESTRADIOL
  12. ARMOUR THYROID [Concomitant]
     Active Substance: THYROID, PORCINE
  13. MONTELUKAST SODIUM [Concomitant]
     Active Substance: MONTELUKAST SODIUM
  14. HYDROXYCHLOROQUINE SULFATE [Concomitant]
     Active Substance: HYDROXYCHLOROQUINE SULFATE
  15. LEFLUNOMIDE [Concomitant]
     Active Substance: LEFLUNOMIDE
  16. AMLODIPINE BESYLATE [Concomitant]
     Active Substance: AMLODIPINE BESYLATE
  17. GABAPENTIN [Concomitant]
     Active Substance: GABAPENTIN
  18. FLUTICASONE PROPIONATE [Concomitant]
     Active Substance: FLUTICASONE PROPIONATE
  19. PREDNISONE [Concomitant]
     Active Substance: PREDNISONE
  20. KEVZARA [Concomitant]
     Active Substance: SARILUMAB
  21. ZIOPTAN [Concomitant]
     Active Substance: TAFLUPROST
  22. AMOXICILLIN [Concomitant]
     Active Substance: AMOXICILLIN
  23. PROVERA [Concomitant]
     Active Substance: MEDROXYPROGESTERONE ACETATE

REACTIONS (4)
  - Eye pain [Unknown]
  - Eye swelling [Unknown]
  - Photophobia [Unknown]
  - Hyperaesthesia teeth [Unknown]

NARRATIVE: CASE EVENT DATE: 20240611
